FAERS Safety Report 9853640 (Version 2)
Quarter: 2014Q1

REPORT INFORMATION
  Report Type: Spontaneous
  Country: SI (occurrence: SI)
  Receive Date: 20140129
  Receipt Date: 20140212
  Transmission Date: 20141002
  Serious: Yes (Death)
  Sender: FDA-Public Use
  Company Number: SI-ABBVIE-14P-261-1195877-00

PATIENT
  Age: 86 Year
  Sex: Female
  Weight: 60 kg

DRUGS (6)
  1. TARKA 180/2 [Suspect]
     Indication: HYPERTENSION
     Route: 048
     Dates: start: 2012
  2. TARKA 180/2 [Suspect]
  3. SANVAL [Concomitant]
     Indication: SLEEP DISORDER
  4. TORECAN [Concomitant]
     Indication: PRODUCT USED FOR UNKNOWN INDICATION
  5. PHYSIOLOGICAL SOLUTION [Concomitant]
     Indication: PRODUCT USED FOR UNKNOWN INDICATION
  6. ACIPAN [Concomitant]
     Indication: PRODUCT USED FOR UNKNOWN INDICATION

REACTIONS (4)
  - Cardiogenic shock [Fatal]
  - Toxicity to various agents [Fatal]
  - Chronic lymphocytic leukaemia [Fatal]
  - Bradycardia [Fatal]
